FAERS Safety Report 15695391 (Version 1)
Quarter: 2018Q4

REPORT INFORMATION
  Report Type: Spontaneous
  Country: US (occurrence: US)
  Receive Date: 20181206
  Receipt Date: 20181206
  Transmission Date: 20190205
  Serious: No
  Sender: FDA-Public Use
  Company Number: US-BAUSCH-BL-2018-004585

PATIENT
  Sex: Female

DRUGS (1)
  1. SYPRINE [Suspect]
     Active Substance: TRIENTINE HYDROCHLORIDE
     Indication: PRODUCT USED FOR UNKNOWN INDICATION
     Dosage: 2 CAPSULES BY MOUTH IN THE MORNING AND 3 CAPSULES BY MOUTH EVENING
     Route: 048

REACTIONS (2)
  - Product dose omission [Unknown]
  - Somnolence [Unknown]
